FAERS Safety Report 17410465 (Version 1)
Quarter: 2020Q1

REPORT INFORMATION
  Report Type: Spontaneous
  Country: CZ (occurrence: CZ)
  Receive Date: 20200212
  Receipt Date: 20200212
  Transmission Date: 20200409
  Serious: Yes (Other)
  Sender: FDA-Public Use
  Company Number: CZ-MYLANLABS-2020M1015430

PATIENT
  Age: 57 Year
  Sex: Male

DRUGS (12)
  1. FOLINIC ACID [Suspect]
     Active Substance: LEUCOVORIN
     Indication: COLORECTAL CANCER METASTATIC
     Dosage: UNK
     Route: 042
     Dates: start: 20171207, end: 2019
  2. DOCETAXEL. [Concomitant]
     Active Substance: DOCETAXEL
     Dosage: 300-100
     Dates: start: 20180725
  3. 5-FLUOROURACIL                     /00098801/ [Concomitant]
     Active Substance: FLUOROURACIL
  4. PANITUMUMAB [Concomitant]
     Active Substance: PANITUMUMAB
  5. CARBOPLATIN. [Concomitant]
     Active Substance: CARBOPLATIN
     Dosage: 300-100
     Dates: start: 20180802
  6. G-CSF [Concomitant]
     Active Substance: GRANULOCYTE COLONY-STIMULATING FACTOR NOS
  7. OXALIPLATIN. [Suspect]
     Active Substance: OXALIPLATIN
     Dosage: UNK
     Route: 042
     Dates: start: 2019
  8. CARBOPLATIN. [Concomitant]
     Active Substance: CARBOPLATIN
     Dosage: 300-100
     Dates: start: 20180725
  9. OXALIPLATIN. [Suspect]
     Active Substance: OXALIPLATIN
     Indication: COLORECTAL CANCER METASTATIC
     Dosage: UNK
     Route: 042
     Dates: start: 20171207, end: 2019
  10. FOLINIC ACID [Suspect]
     Active Substance: LEUCOVORIN
     Dosage: UNK
     Route: 042
     Dates: start: 2019
  11. IRINOTECAN [Concomitant]
     Active Substance: IRINOTECAN
  12. DOCETAXEL. [Concomitant]
     Active Substance: DOCETAXEL
     Dosage: 300-100
     Dates: start: 20180822

REACTIONS (3)
  - Neurotoxicity [Recovered/Resolved]
  - Haematotoxicity [Recovered/Resolved]
  - Dermatitis acneiform [Recovered/Resolved]

NARRATIVE: CASE EVENT DATE: 2018
